FAERS Safety Report 9077959 (Version 1)
Quarter: 2013Q1

REPORT INFORMATION
  Report Type: Report from Study
  Country: US (occurrence: US)
  Receive Date: 20130130
  Receipt Date: 20130130
  Transmission Date: 20140127
  Serious: No
  Sender: FDA-Public Use
  Company Number: US-ABBOTT-12P-163-0959193-00

PATIENT
  Age: 57 Year
  Sex: Female

DRUGS (8)
  1. HUMIRA 40 MG/0.8 ML PEN [Suspect]
     Indication: CROHN^S DISEASE
     Dates: start: 20120601, end: 20120716
  2. BENICAR HCT [Concomitant]
     Indication: HYPERTENSION
     Dosage: 40-12.5MG DAILY
  3. XYZAL [Concomitant]
     Indication: HYPERSENSITIVITY
  4. PROTONIX [Concomitant]
     Indication: PRODUCT USED FOR UNKNOWN INDICATION
  5. PENTASA [Concomitant]
     Indication: PRODUCT USED FOR UNKNOWN INDICATION
  6. TRAMADOL [Concomitant]
     Indication: ARTHRITIS ENTEROPATHIC
  7. AZATHIOPRINE [Concomitant]
     Indication: PRODUCT USED FOR UNKNOWN INDICATION
  8. NEURONTIN [Concomitant]
     Indication: ARTHRITIS

REACTIONS (5)
  - Formication [Recovering/Resolving]
  - Panic attack [Recovering/Resolving]
  - Palpitations [Recovering/Resolving]
  - Tension [Recovering/Resolving]
  - Crying [Recovering/Resolving]
